FAERS Safety Report 6115694-2 (Version None)
Quarter: 2009Q1

REPORT INFORMATION
  Report Type: 
  Country: None (occurrence: None)
  Receive Date: 20090313
  Receipt Date: 20090303
  Transmission Date: 20090719
  Serious: Yes (Death)
  Sender: FDA-Public Use
  Company Number: ZA-B.I. PHARMACEUTICALS,INC./RIDGEFIELD-2009-DE-02055GD

PATIENT
  Sex: Female

DRUGS (3)
  1. NEVIRAPINE [Suspect]
     Indication: HIV INFECTION
     Dosage: ONE-HALF THE PEAK DOSAGE FOR 14 DAYS, ESCALATED TO FULL DOSAGE IF NO MAJOR TOXICITIES OCCURRED
  2. LAMIVUDINE [Suspect]
     Indication: HIV INFECTION
  3. STAVUDINE [Suspect]
     Indication: HIV INFECTION

REACTIONS (1)
  - DRUG TOXICITY [None]
